FAERS Safety Report 18290922 (Version 1)
Quarter: 2020Q3

REPORT INFORMATION
  Report Type: Spontaneous
  Country: GB (occurrence: GB)
  Receive Date: 20200921
  Receipt Date: 20200921
  Transmission Date: 20201103
  Serious: Yes (Hospitalization)
  Sender: FDA-Public Use
  Company Number: GB-PFIZER INC-2020360686

PATIENT
  Age: 66 Year
  Sex: Female
  Weight: 94 kg

DRUGS (2)
  1. IBUPROFEN SODIUM. [Concomitant]
     Active Substance: IBUPROFEN SODIUM
  2. SERTRALINE HCL [Suspect]
     Active Substance: SERTRALINE HYDROCHLORIDE
     Indication: ANXIETY
     Route: 048
     Dates: start: 20200824, end: 20200827

REACTIONS (4)
  - Electrocardiogram T wave abnormal [Recovered/Resolved]
  - Pain [Unknown]
  - Palpitations [Unknown]
  - Flushing [Unknown]

NARRATIVE: CASE EVENT DATE: 20200827
